FAERS Safety Report 8344799-0 (Version None)
Quarter: 2012Q2

REPORT INFORMATION
  Report Type: 
  Country: None (occurrence: None)
  Receive Date: 20120508
  Receipt Date: 20120501
  Transmission Date: 20120825
  Serious: Yes (Hospitalization)
  Sender: FDA-Public Use
  Company Number: US-GLAXOSMITHKLINE-A0914636A

PATIENT
  Age: 73 Year
  Sex: Male
  Weight: 116.8 kg

DRUGS (5)
  1. AVANDIA [Suspect]
     Indication: DIABETES MELLITUS
     Dosage: 8MG PER DAY
     Route: 048
     Dates: start: 20030101, end: 20070301
  2. TENORMIN [Concomitant]
  3. MONOPRIL [Concomitant]
  4. GLUCOTROL [Concomitant]
  5. PAXIL [Concomitant]

REACTIONS (8)
  - GENERALISED OEDEMA [None]
  - MYOCARDIAL INFARCTION [None]
  - DILATATION VENTRICULAR [None]
  - RENAL FAILURE [None]
  - DIASTOLIC DYSFUNCTION [None]
  - LOBAR PNEUMONIA [None]
  - CARDIAC FAILURE CONGESTIVE [None]
  - CORONARY ARTERY DISEASE [None]
